FAERS Safety Report 6196712-2 (Version None)
Quarter: 2009Q2

REPORT INFORMATION
  Report Type: 
  Country: None (occurrence: None)
  Receive Date: 20090520
  Receipt Date: 20090317
  Transmission Date: 20091009
  Serious: No
  Sender: FDA-Public Use
  Company Number: US-BAYER-200910863BCC

PATIENT
  Sex: Female

DRUGS (2)
  1. ALEVE [Suspect]
     Indication: DRUG USE FOR UNKNOWN INDICATION
     Dosage: TOOK 2 ALEVE
     Route: 048
  2. AMOXICILLIN [Concomitant]
     Route: 065

REACTIONS (4)
  - CHILLS [None]
  - HYPERVENTILATION [None]
  - PARAESTHESIA [None]
  - PARAESTHESIA ORAL [None]
